FAERS Safety Report 10032428 (Version 1)
Quarter: 2014Q1

REPORT INFORMATION
  Report Type: Spontaneous
  Country: JP (occurrence: None)
  Receive Date: 20140320
  Receipt Date: 20140320
  Transmission Date: 20141002
  Serious: Yes (Other)
  Sender: FDA-Public Use
  Company Number: JP-20140070

PATIENT
  Sex: Male

DRUGS (2)
  1. LIPIODOL ULTRA FLUIDE [Suspect]
     Indication: THERAPEUTIC EMBOLISATION
     Route: 013
  2. IA-CALL (CIPLASTIN) [Suspect]
     Indication: THERAPEUTIC EMBOLISATION
     Route: 013

REACTIONS (3)
  - Anaphylactic reaction [None]
  - Off label use [None]
  - Myocardial infarction [None]
